FAERS Safety Report 15335295 (Version 3)
Quarter: 2021Q3

REPORT INFORMATION
  Report Type: Spontaneous
  Country: NL (occurrence: NL)
  Receive Date: 20180830
  Receipt Date: 20210730
  Transmission Date: 20211014
  Serious: Yes (Hospitalization, Other)
  Sender: FDA-Public Use
  Company Number: PHHY2018NL082701

PATIENT
  Sex: Female

DRUGS (4)
  1. METHOTREXATE. [Suspect]
     Active Substance: METHOTREXATE
     Indication: ACUTE LYMPHOCYTIC LEUKAEMIA
     Dosage: 10 MG
     Route: 065
     Dates: start: 20170206
  2. 6?MERCAPTOPURINE MONOHYDRATE [Suspect]
     Active Substance: MERCAPTOPURINE
     Indication: ACUTE LYMPHOCYTIC LEUKAEMIA
     Dosage: 50 MG, (5 DAYS PER WEEK)
     Route: 065
     Dates: start: 20170320
  3. PEGASPARGASE [Suspect]
     Active Substance: PEGASPARGASE
     Indication: ACUTE LYMPHOCYTIC LEUKAEMIA
     Dosage: UNK (UNK MG)
     Route: 065
  4. CLOFARABINE. [Suspect]
     Active Substance: CLOFARABINE
     Indication: ACUTE LYMPHOCYTIC LEUKAEMIA
     Dosage: 54 MG
     Route: 065
     Dates: start: 20160215, end: 20160219

REACTIONS (1)
  - Urinary tract infection bacterial [Recovered/Resolved]

NARRATIVE: CASE EVENT DATE: 20180304
